FAERS Safety Report 24075215 (Version 1)
Quarter: 2024Q3

REPORT INFORMATION
  Report Type: Spontaneous
  Country: US (occurrence: US)
  Receive Date: 20240710
  Receipt Date: 20240710
  Transmission Date: 20241017
  Serious: No
  Sender: UPSHER-SMITH
  Company Number: US-UPSHER-SMITH LABORATORIES, LLC-2024USL00357

PATIENT
  Sex: Female
  Weight: 52.608 kg

DRUGS (2)
  1. ISOTRETINOIN [Suspect]
     Active Substance: ISOTRETINOIN
     Indication: Acne
     Dosage: 60 MG, 1X/DAY WITH FOOD AND WATER
     Route: 048
     Dates: start: 20240313, end: 2024
  2. ISOTRETINOIN [Suspect]
     Active Substance: ISOTRETINOIN
     Indication: Acne
     Route: 048

REACTIONS (5)
  - Abdominal discomfort [Recovered/Resolved]
  - Arthralgia [Unknown]
  - Dizziness [Unknown]
  - Lip dry [Unknown]
  - Dry skin [Unknown]
